FAERS Safety Report 10469261 (Version 3)
Quarter: 2015Q2

REPORT INFORMATION
  Report Type: Spontaneous
  Country: GB (occurrence: None)
  Receive Date: 20140919
  Receipt Date: 20150604
  Transmission Date: 20150821
  Serious: Yes (Other)
  Sender: FDA-Public Use
  Company Number: 2014-002772

PATIENT
  Age: 77 Year
  Sex: Female
  Weight: 64 kg

DRUGS (18)
  1. SIMVASTATIN. [Concomitant]
     Active Substance: SIMVASTATIN
  2. ALENDRONIC ACID [Concomitant]
     Active Substance: ALENDRONIC ACID
  3. GLYCERYL TRINITRATE [Concomitant]
     Active Substance: NITROGLYCERIN
  4. AMOXICILLIN. [Concomitant]
     Active Substance: AMOXICILLIN
  5. OXYAL /00567501/ (HYALURONIC ACID) [Concomitant]
  6. E45 (PARAFFIN, LIQUID, WHITE SOFT PARAFFIN, WOOL FAT) [Concomitant]
  7. RISEDRONATE (RISEDRONATE SODIUM) UNKNOWN, UNKUNK [Suspect]
     Active Substance: RISEDRONATE SODIUM
     Route: 002
     Dates: start: 20140703
  8. BETAMETHASONE VALERATE. [Concomitant]
     Active Substance: BETAMETHASONE VALERATE
  9. PREDNISOLONE. [Concomitant]
     Active Substance: PREDNISOLONE
  10. SALMETEROL [Concomitant]
     Active Substance: SALMETEROL
  11. BUPRENORPHINE [Concomitant]
     Active Substance: BUPRENORPHINE
  12. FOLIC ACID. [Concomitant]
     Active Substance: FOLIC ACID
  13. SALBUTAMOL [Concomitant]
     Active Substance: ALBUTEROL
  14. MORPHINE SULPHATE [Concomitant]
     Active Substance: MORPHINE SULFATE
  15. TIOTROPIUM [Concomitant]
     Active Substance: TIOTROPIUM
  16. ZAPAIN (CODEINE PHOSPHATE, PARACETAMOL) [Concomitant]
  17. CALCIUM CARBONATE. [Concomitant]
     Active Substance: CALCIUM CARBONATE
  18. LEVOTHYROXINE [Concomitant]
     Active Substance: LEVOTHYROXINE

REACTIONS (3)
  - Lip swelling [None]
  - Blister [None]
  - Urticaria [None]

NARRATIVE: CASE EVENT DATE: 20140729
